FAERS Safety Report 6120870-9 (Version None)
Quarter: 2009Q1

REPORT INFORMATION
  Report Type: 
  Country: None (occurrence: None)
  Receive Date: 20090317
  Receipt Date: 20090305
  Transmission Date: 20090719
  Serious: Yes (Other)
  Sender: FDA-Public Use
  Company Number: JP-ELI_LILLY_AND_COMPANY-JP200903002161

PATIENT
  Age: 69 Year
  Sex: Female
  Weight: 52.6 kg

DRUGS (5)
  1. EVISTA [Suspect]
     Route: 048
  2. PEGASYS [Concomitant]
     Indication: VIRAEMIA
     Dosage: 180 UG, WEEKLY (1/W)
     Route: 058
     Dates: start: 20080327, end: 20090226
  3. COPEGUS [Concomitant]
     Indication: VIRAEMIA
     Dosage: 600 MG, 2/D
     Route: 048
  4. PARIET [Concomitant]
     Route: 048
  5. MUCOSTA [Concomitant]
     Route: 048

REACTIONS (1)
  - RETINOPATHY HAEMORRHAGIC [None]
